FAERS Safety Report 6083766-7 (Version None)
Quarter: 2009Q1

REPORT INFORMATION
  Report Type: 
  Country: None (occurrence: None)
  Receive Date: 20090219
  Receipt Date: 20080521
  Transmission Date: 20090719
  Serious: No
  Sender: FDA-Public Use
  Company Number: US-ASTRAZENECA-2008UW10430

PATIENT
  Age: 53 Year
  Sex: Female

DRUGS (1)
  1. ACCOLATE [Suspect]
     Indication: HYPERSENSITIVITY
     Route: 048

REACTIONS (1)
  - FLATULENCE [None]
